FAERS Safety Report 13518931 (Version 1)
Quarter: 2017Q2

REPORT INFORMATION
  Report Type: Spontaneous
  Country: US (occurrence: US)
  Receive Date: 20170505
  Receipt Date: 20170505
  Transmission Date: 20170830
  Serious: Yes (Hospitalization)
  Sender: FDA-Public Use
  Company Number: US-VIFOR (INTERNATIONAL) INC.-VIT-2017-04871

PATIENT
  Age: 91 Year
  Sex: Female

DRUGS (19)
  1. VESICARE [Concomitant]
     Active Substance: SOLIFENACIN SUCCINATE
  2. CALCITRIOL. [Concomitant]
     Active Substance: CALCITRIOL
  3. MELATONIN [Concomitant]
     Active Substance: MELATONIN
  4. PROPYLENE GLYCOL [Concomitant]
     Active Substance: PROPYLENE GLYCOL
  5. PARACETAMOL [Concomitant]
     Active Substance: ACETAMINOPHEN
  6. IPRATROPIUM BROMIDE/ALBUTEROL [Concomitant]
  7. MAGNESIUM OXIDE. [Concomitant]
     Active Substance: MAGNESIUM OXIDE
  8. LOPERAMIDE HYDROCHLORIDE. [Concomitant]
     Active Substance: LOPERAMIDE HYDROCHLORIDE
  9. PARACETAMOL/HYDROCODONE [Concomitant]
  10. BENADRYL [Concomitant]
     Active Substance: DIPHENHYDRAMINE HYDROCHLORIDE
  11. PROMETHAZINE HYDROCHLORIDE. [Concomitant]
     Active Substance: PROMETHAZINE HYDROCHLORIDE
  12. FERROUS SULFATE. [Concomitant]
     Active Substance: FERROUS SULFATE
  13. COLACE [Concomitant]
     Active Substance: DOCUSATE SODIUM
  14. PROCRIT [Concomitant]
     Active Substance: ERYTHROPOIETIN
  15. MELOXICAM. [Concomitant]
     Active Substance: MELOXICAM
  16. AMLODIPINE BESILATE [Concomitant]
     Active Substance: AMLODIPINE BESYLATE
  17. VELTASSA [Suspect]
     Active Substance: PATIROMER
     Indication: CHRONIC KIDNEY DISEASE
     Route: 048
     Dates: start: 20160302
  18. HYDROCORTISONE ACETATE. [Concomitant]
     Active Substance: HYDROCORTISONE ACETATE
  19. CLARITIN [Concomitant]
     Active Substance: LORATADINE

REACTIONS (3)
  - Product use in unapproved indication [Unknown]
  - Mental status changes [Unknown]
  - Urinary tract infection [Unknown]

NARRATIVE: CASE EVENT DATE: 20160302
